FAERS Safety Report 7424263-3 (Version None)
Quarter: 2011Q2

REPORT INFORMATION
  Report Type: 
  Country: None (occurrence: None)
  Receive Date: 20110419
  Receipt Date: 20110406
  Transmission Date: 20111010
  Serious: Yes (Other)
  Sender: FDA-Public Use
  Company Number: JP-BRISTOL-MYERS SQUIBB COMPANY-15680549

PATIENT

DRUGS (1)
  1. KENACORT [Suspect]
     Indication: PROPHYLAXIS
     Dosage: INFUSED AT A DOSE OF 40 MG DILUTED 4 TIMES

REACTIONS (5)
  - MUCOSAL EROSION [None]
  - INJURY [None]
  - CANDIDIASIS [None]
  - PNEUMOMEDIASTINUM [None]
  - HAEMORRHAGE [None]
